FAERS Safety Report 19402063 (Version 1)
Quarter: 2021Q2

REPORT INFORMATION
  Report Type: Spontaneous
  Country: US (occurrence: US)
  Receive Date: 20210610
  Receipt Date: 20210610
  Transmission Date: 20210717
  Serious: No
  Sender: FDA-Public Use
  Company Number: US-SA-2021SA179721

PATIENT
  Sex: Male

DRUGS (2)
  1. ALLEGRA?D [Suspect]
     Active Substance: FEXOFENADINE HYDROCHLORIDE\PSEUDOEPHEDRINE HYDROCHLORIDE
     Dosage: UNK
     Route: 065
  2. ALLEGRA?D 24 HOUR [Suspect]
     Active Substance: FEXOFENADINE HYDROCHLORIDE\PSEUDOEPHEDRINE HYDROCHLORIDE
     Dosage: STRENGTH : 180AMG+240 MG
     Route: 065

REACTIONS (4)
  - Restlessness [Recovering/Resolving]
  - Agitation [Recovering/Resolving]
  - Wrong product administered [Unknown]
  - Wrong technique in product usage process [Unknown]
